FAERS Safety Report 8571048-0 (Version None)
Quarter: 2012Q3

REPORT INFORMATION
  Report Type: 
  Country: None (occurrence: None)
  Receive Date: 20120730
  Receipt Date: 20120730
  Transmission Date: 20120928
  Serious: Yes (Hospitalization)
  Sender: FDA-Public Use
  Company Number: None

PATIENT
  Sex: Female
  Weight: 54.4316 kg

DRUGS (1)
  1. MEFLOQUINE HYDROCHLORIDE [Suspect]
     Indication: MALARIA PROPHYLAXIS
     Dosage: 250 MG ONCE PER WEEK PO
     Route: 048
     Dates: start: 20120528, end: 20120716

REACTIONS (14)
  - NAUSEA [None]
  - HEADACHE [None]
  - IMPULSIVE BEHAVIOUR [None]
  - VERTIGO [None]
  - HOMICIDAL IDEATION [None]
  - VOMITING [None]
  - MENTAL DISORDER [None]
  - PARANOIA [None]
  - SUICIDAL IDEATION [None]
  - ANXIETY [None]
  - DIZZINESS [None]
  - VIOLENCE-RELATED SYMPTOM [None]
  - DIARRHOEA [None]
  - FEAR [None]
